FAERS Safety Report 13766052 (Version 1)
Quarter: 2017Q3

REPORT INFORMATION
  Report Type: Spontaneous
  Country: US (occurrence: US)
  Receive Date: 20170718
  Receipt Date: 20170718
  Transmission Date: 20171127
  Serious: No
  Sender: FDA-Public Use
  Company Number: US-ENDO PHARMACEUTICALS INC-2016-007539

PATIENT
  Sex: Male
  Weight: 68.1 kg

DRUGS (1)
  1. TRIAMCINOLONE ACETONIDE CREAM 0.1% [Suspect]
     Active Substance: TRIAMCINOLONE ACETONIDE
     Indication: PRURITUS
     Dosage: 1-3 TIMES A DAY, PRN
     Route: 061

REACTIONS (4)
  - Product packaging quantity issue [Unknown]
  - Expired product administered [Unknown]
  - Product packaging issue [Unknown]
  - Body height decreased [Unknown]

NARRATIVE: CASE EVENT DATE: 2016
